FAERS Safety Report 20902277 (Version 1)
Quarter: 2022Q2

REPORT INFORMATION
  Report Type: Spontaneous
  Country: US (occurrence: None)
  Receive Date: 20220601
  Receipt Date: 20220601
  Transmission Date: 20220720
  Serious: Yes (Hospitalization)
  Sender: FDA-Public Use
  Company Number: None

PATIENT
  Age: 39 Year
  Sex: Female
  Weight: 88.0 kg

DRUGS (6)
  1. CAPECITABINE [Suspect]
     Active Substance: CAPECITABINE
     Indication: Breast cancer female
     Dosage: FREQUENCY : TWICE A DAY;?
     Route: 048
     Dates: start: 20220420
  2. MAGNESIUM OXIDE [Concomitant]
  3. POTASSIUM CHLORIDE [Concomitant]
  4. CALCIUM CARBONATE [Concomitant]
  5. TESSALON PERLES [Concomitant]
  6. SUCRALFATE [Concomitant]

REACTIONS (2)
  - Seizure [None]
  - Medical induction of coma [None]
